FAERS Safety Report 19088882 (Version 2)
Quarter: 2021Q4

REPORT INFORMATION
  Report Type: Spontaneous
  Country: GB (occurrence: GB)
  Receive Date: 20210403
  Receipt Date: 20211115
  Transmission Date: 20220303
  Serious: Yes (Hospitalization, Disabling, Other)
  Sender: FDA-Public Use
  Company Number: GB-MHRA-EYC 00245260

PATIENT
  Age: 32 Year
  Sex: Female
  Weight: 52 kg

DRUGS (3)
  1. METRONIDAZOLE [Suspect]
     Active Substance: METRONIDAZOLE
     Indication: Ill-defined disorder
     Dosage: UNK (2 X 400 PER DAY FOR 14 DAYS)
     Route: 048
     Dates: start: 20210308
  2. METRONIDAZOLE [Suspect]
     Active Substance: METRONIDAZOLE
     Indication: Pelvic inflammatory disease
     Dosage: 400 MILLIGRAM, TWO TIMES A DAY
     Route: 048
     Dates: start: 20210308
  3. AZITHROMYCIN DIHYDRATE [Concomitant]
     Active Substance: AZITHROMYCIN DIHYDRATE
     Indication: Ill-defined disorder
     Dosage: UNK
     Route: 065

REACTIONS (9)
  - Headache [Not Recovered/Not Resolved]
  - Vulvovaginal pain [Not Recovered/Not Resolved]
  - Blepharospasm [Not Recovered/Not Resolved]
  - Dysuria [Not Recovered/Not Resolved]
  - Eye pain [Not Recovered/Not Resolved]
  - Eyelid disorder [Unknown]
  - Nipple pain [Unknown]
  - Candida infection [Unknown]
  - Medication error [Unknown]

NARRATIVE: CASE EVENT DATE: 20210309
